FAERS Safety Report 22018149 (Version 1)
Quarter: 2023Q1

REPORT INFORMATION
  Report Type: Spontaneous
  Country: GR (occurrence: GR)
  Receive Date: 20230221
  Receipt Date: 20230221
  Transmission Date: 20230418
  Serious: Yes (Hospitalization, Other)
  Sender: FDA-Public Use
  Company Number: GR-WOODWARD-2023-GR-000006

PATIENT
  Age: 69 Year
  Sex: Male

DRUGS (1)
  1. DUTASTERIDE\TAMSULOSIN HYDROCHLORIDE [Suspect]
     Active Substance: DUTASTERIDE\TAMSULOSIN HYDROCHLORIDE
     Indication: Product used for unknown indication
     Dosage: UNKNOWN
     Route: 065

REACTIONS (4)
  - Laryngeal cancer [Unknown]
  - Oropharyngeal pain [Unknown]
  - Wrong technique in product usage process [Unknown]
  - Incorrect route of product administration [Unknown]
